FAERS Safety Report 9410008 (Version 1)
Quarter: 2013Q2

REPORT INFORMATION
  Report Type: Spontaneous
  Country: US (occurrence: None)
  Receive Date: 20130610
  Receipt Date: 20130610
  Transmission Date: 20140414
  Serious: Yes (Hospitalization, Other)
  Sender: FDA-Public Use
  Company Number: 2013P1004829

PATIENT
  Age: 74 Year
  Sex: Female

DRUGS (6)
  1. INFUMORPH [Suspect]
     Indication: SPINAL PAIN
     Route: 037
  2. INFUMORPH [Suspect]
     Indication: PAIN
     Route: 037
  3. MORPHINE [Suspect]
     Indication: SPINAL PAIN
     Route: 037
  4. MORPHINE [Suspect]
     Indication: PAIN
     Route: 037
  5. BUPIVACAINE [Suspect]
     Indication: SPINAL PAIN
     Route: 037
  6. BUPIVACAINE [Suspect]
     Indication: PAIN
     Route: 037

REACTIONS (12)
  - Implant site effusion [None]
  - Headache [None]
  - Pain [None]
  - Abdominal distension [None]
  - Hypoaesthesia [None]
  - Hypoaesthesia [None]
  - Local swelling [None]
  - Osteoporosis [None]
  - Spinal compression fracture [None]
  - Device failure [None]
  - Medical device complication [None]
  - Haemorrhage [None]
